FAERS Safety Report 7007652-0 (Version None)
Quarter: 2010Q3

REPORT INFORMATION
  Report Type: 
  Country: None (occurrence: None)
  Receive Date: 20100922
  Receipt Date: 20100913
  Transmission Date: 20110219
  Serious: Yes (Hospitalization, Other)
  Sender: FDA-Public Use
  Company Number: CL-PFIZER INC-2010114261

PATIENT
  Sex: Male

DRUGS (3)
  1. AMLODIPINE BESYLATE [Suspect]
     Indication: HYPERTENSION
     Dosage: UNK
  2. TORISEL [Suspect]
     Indication: RENAL CANCER METASTATIC
     Dosage: UNK
     Dates: start: 20100701, end: 20100901
  3. INSULIN [Concomitant]
     Indication: DIABETES MELLITUS
     Dosage: UNK

REACTIONS (3)
  - ANAEMIA [None]
  - OEDEMA [None]
  - PROTEINURIA [None]
